FAERS Safety Report 8440592-9 (Version None)
Quarter: 2012Q2

REPORT INFORMATION
  Report Type: 
  Country: None (occurrence: None)
  Receive Date: 20120615
  Receipt Date: 20120606
  Transmission Date: 20120825
  Serious: No
  Sender: FDA-Public Use
  Company Number: US-TEVA-341832USA

PATIENT
  Sex: Male

DRUGS (1)
  1. NUVIGIL [Suspect]

REACTIONS (2)
  - FEELING ABNORMAL [None]
  - DRUG EFFECT DECREASED [None]
